FAERS Safety Report 13992353 (Version 1)
Quarter: 2017Q3

REPORT INFORMATION
  Report Type: Spontaneous
  Country: US (occurrence: US)
  Receive Date: 20170920
  Receipt Date: 20170920
  Transmission Date: 20171128
  Serious: No
  Sender: FDA-Public Use
  Company Number: US-JNJFOC-20170815832

PATIENT
  Age: 75 Year
  Sex: Female
  Weight: 113.4 kg

DRUGS (2)
  1. NIZORAL [Suspect]
     Active Substance: KETOCONAZOLE
     Route: 048
  2. NIZORAL [Suspect]
     Active Substance: KETOCONAZOLE
     Indication: DANDRUFF
     Dosage: 2 TABLESPOONS ONCE
     Route: 048
     Dates: start: 20170811, end: 20170811

REACTIONS (1)
  - Hair texture abnormal [Recovering/Resolving]

NARRATIVE: CASE EVENT DATE: 20170811
